FAERS Safety Report 7057132-1 (Version None)
Quarter: 2010Q4

REPORT INFORMATION
  Report Type: 
  Country: None (occurrence: None)
  Receive Date: 20101021
  Receipt Date: 20101021
  Transmission Date: 20110411
  Serious: Yes (Other)
  Sender: FDA-Public Use
  Company Number: None

PATIENT
  Sex: Female

DRUGS (1)
  1. PRAVASTATIN [Suspect]
     Dosage: 10MG ONE DAILY PO
     Route: 048
     Dates: start: 20100610, end: 20101020

REACTIONS (4)
  - FATIGUE [None]
  - GASTRIC DISORDER [None]
  - MALAISE [None]
  - PRODUCT ODOUR ABNORMAL [None]
